FAERS Safety Report 8264194-2 (Version None)
Quarter: 2012Q2

REPORT INFORMATION
  Report Type: 
  Country: None (occurrence: None)
  Receive Date: 20120403
  Receipt Date: 20120326
  Transmission Date: 20120825
  Serious: Yes (Other)
  Sender: FDA-Public Use
  Company Number: A0971389A

PATIENT

DRUGS (5)
  1. GRANULOCYTE COL.STIM.FACT [Concomitant]
  2. DEXTROSE 5% AND SODIUM CHLORIDE 0.45% IN PLASTIC CONTAINER [Concomitant]
  3. CYCLOPHOSPHAMIDE [Suspect]
     Indication: NON-HODGKIN'S LYMPHOMA
     Dosage: 750 MG/M2 / PER DAY / INTRAVENOUS
     Route: 042
  4. TOPOTECAN HYDROCHLORIDE [Suspect]
     Indication: NON-HODGKIN'S LYMPHOMA
     Dosage: 3 MG/M2 / PER DAY / INJECTION
  5. MESNA [Concomitant]

REACTIONS (2)
  - VENTRICULAR EXTRASYSTOLES [None]
  - VENTRICULAR TACHYCARDIA [None]
